FAERS Safety Report 7788846-3 (Version None)
Quarter: 2011Q3

REPORT INFORMATION
  Report Type: 
  Country: None (occurrence: None)
  Receive Date: 20110928
  Receipt Date: 20110912
  Transmission Date: 20111222
  Serious: Yes (Other)
  Sender: FDA-Public Use
  Company Number: 2011P1005455

PATIENT
  Age: 78 Year
  Sex: Female
  Weight: 77.1115 kg

DRUGS (11)
  1. VERAPAMIL [Concomitant]
  2. TERCONAZOLE [Suspect]
     Indication: VULVOVAGINAL BURNING SENSATION
     Dosage: 1 APPLICATORFUL, X1, VAG
     Route: 067
     Dates: start: 20110124, end: 20110101
  3. TERCONAZOLE [Suspect]
     Indication: VULVOVAGINAL PRURITUS
     Dosage: 1 APPLICATORFUL, X1, VAG
     Route: 067
     Dates: start: 20110124, end: 20110101
  4. KLOR-CON [Concomitant]
  5. XANAX [Concomitant]
  6. LEVOXYL [Concomitant]
  7. CHLORTHALIDONE [Concomitant]
  8. NYSTATIN + TRIAMCINOLONE ACETONIDE [Suspect]
     Indication: VULVOVAGINAL PRURITUS
     Dosage: 1 APPLICATORFUL,X1, VAG
     Route: 067
     Dates: start: 20110124, end: 20110101
  9. NYSTATIN + TRIAMCINOLONE ACETONIDE [Suspect]
     Indication: VULVOVAGINAL BURNING SENSATION
     Dosage: 1 APPLICATORFUL,X1, VAG
     Route: 067
     Dates: start: 20110124, end: 20110101
  10. COUMADIN [Concomitant]
  11. ASPIRIN [Concomitant]

REACTIONS (6)
  - VULVOVAGINAL BURNING SENSATION [None]
  - URINARY TRACT INFECTION [None]
  - VULVOVAGINAL DISCOMFORT [None]
  - GENITAL PAIN [None]
  - WRONG DRUG ADMINISTERED [None]
  - VULVOVAGINAL PRURITUS [None]
